FAERS Safety Report 7508698-6 (Version None)
Quarter: 2011Q2

REPORT INFORMATION
  Report Type: 
  Country: None (occurrence: None)
  Receive Date: 20110527
  Receipt Date: 20100719
  Transmission Date: 20111010
  Serious: No
  Sender: FDA-Public Use
  Company Number: A0873254A

PATIENT
  Age: 78 Year
  Sex: Female

DRUGS (1)
  1. VENTOLIN HFA [Suspect]
     Dosage: 90MCG UNKNOWN
     Route: 055

REACTIONS (1)
  - DEVICE INEFFECTIVE [None]
